APPROVED DRUG PRODUCT: CAP-PROFEN
Active Ingredient: IBUPROFEN
Strength: 200MG
Dosage Form/Route: TABLET;ORAL
Application: A072097 | Product #001
Applicant: L PERRIGO CO
Approved: Dec 8, 1987 | RLD: No | RS: No | Type: DISCN